FAERS Safety Report 10093630 (Version 1)
Quarter: 2014Q2

REPORT INFORMATION
  Report Type: Spontaneous
  Country: US (occurrence: US)
  Receive Date: 20140421
  Receipt Date: 20140421
  Transmission Date: 20141212
  Serious: No
  Sender: FDA-Public Use
  Company Number: US-SANOFI-AVENTIS-2013SA079713

PATIENT
  Sex: Female

DRUGS (4)
  1. ALLEGRA [Suspect]
     Indication: PRURITUS
     Dosage: DOSE : SIX TO EIGHT TABLETS DAILY.
     Route: 048
  2. ALLEGRA [Suspect]
     Indication: URTICARIA
     Dosage: DOSE : SIX TO EIGHT TABLETS DAILY.
     Route: 048
  3. FEXOFENADINE HYDROCHLORIDE [Concomitant]
     Indication: URTICARIA
  4. ZYRTEC [Concomitant]

REACTIONS (2)
  - Drug ineffective [Unknown]
  - Extra dose administered [Unknown]
